FAERS Safety Report 18000403 (Version 1)
Quarter: 2020Q3

REPORT INFORMATION
  Report Type: Spontaneous
  Country: IT (occurrence: IT)
  Receive Date: 20200709
  Receipt Date: 20200709
  Transmission Date: 20201103
  Serious: Yes (Other)
  Sender: FDA-Public Use
  Company Number: IT-AMGEN-ITASP2020105769

PATIENT
  Age: 73 Year
  Sex: Female

DRUGS (1)
  1. AMGEVITA [Suspect]
     Active Substance: ADALIMUMAB
     Indication: PSORIATIC ARTHROPATHY
     Dosage: 40 MILLIGRAM, CYCLICAL
     Route: 058
     Dates: start: 20190506, end: 20191106

REACTIONS (3)
  - Arthritis [Recovered/Resolved]
  - Drug ineffective [Recovered/Resolved]
  - Joint swelling [Recovered/Resolved]

NARRATIVE: CASE EVENT DATE: 20190506
